FAERS Safety Report 5664289-3 (Version None)
Quarter: 2008Q1

REPORT INFORMATION
  Report Type: 
  Country: None (occurrence: None)
  Receive Date: 20080311
  Receipt Date: 20080311
  Transmission Date: 20080703
  Serious: Yes (Other)
  Sender: FDA-Public Use
  Company Number: None

PATIENT
  Age: 49 Year
  Sex: Male
  Weight: 69.7632 kg

DRUGS (1)
  1. NICOTINE [Suspect]
     Indication: TOBACCO USER
     Dosage: 1 PIECE OF GUM QID BUCCAL
     Route: 002
     Dates: start: 20071106, end: 20071107

REACTIONS (1)
  - THROAT TIGHTNESS [None]
